FAERS Safety Report 6106325-6 (Version None)
Quarter: 2009Q1

REPORT INFORMATION
  Report Type: 
  Country: None (occurrence: None)
  Receive Date: 20090306
  Receipt Date: 20090225
  Transmission Date: 20090719
  Serious: Yes (Other)
  Sender: FDA-Public Use
  Company Number: PHHY2009IT05684

PATIENT
  Sex: Female

DRUGS (1)
  1. ACLASTA [Suspect]
     Dosage: UNK
     Dates: start: 20090107

REACTIONS (5)
  - CARDIAC FIBRILLATION [None]
  - HYPERTENSION [None]
  - NIGHTMARE [None]
  - TACHYCARDIA [None]
  - TINNITUS [None]
